FAERS Safety Report 5954802-0 (Version None)
Quarter: 2008Q4

REPORT INFORMATION
  Report Type: 
  Country: None (occurrence: None)
  Receive Date: 20081113
  Receipt Date: 20081029
  Transmission Date: 20090506
  Serious: Yes (Death, Other)
  Sender: FDA-Public Use
  Company Number: 6043084

PATIENT
  Age: 88 Year
  Sex: Male
  Weight: 67 kg

DRUGS (7)
  1. CARDENSIEL(TABLET))SBSOPROLOL FUMARATE) [Suspect]
     Indication: ISCHAEMIC CARDIOMYOPATHY
     Dosage: 2.5 MG (2.5 MG, 1 IN 1 D) ORAL
     Route: 048
     Dates: start: 20051101
  2. DIAFUSOR(GLYCERYL TRINITRATE) [Concomitant]
  3. FUROSEMIDE (FUROSEMIIE) [Concomitant]
  4. PRAVASTATIN [Concomitant]
  5. PREVISCAN (FLUINDIONE) [Concomitant]
  6. POTASSIUM CHLORIDE [Concomitant]
  7. KENZEN (CANDESARTAN CILEXETIL) [Concomitant]

REACTIONS (2)
  - CONDITION AGGRAVATED [None]
  - PROSTATE CANCER METASTATIC [None]
